FAERS Safety Report 18187249 (Version 2)
Quarter: 2020Q3

REPORT INFORMATION
  Report Type: Spontaneous
  Country: DE (occurrence: DE)
  Receive Date: 20200824
  Receipt Date: 20200910
  Transmission Date: 20201103
  Serious: Yes (Hospitalization, Other)
  Sender: FDA-Public Use
  Company Number: NVSC2020DE232012

PATIENT
  Age: 77 Year
  Sex: Male

DRUGS (8)
  1. HEPARIN [Concomitant]
     Active Substance: HEPARIN SODIUM
     Indication: PRODUCT USED FOR UNKNOWN INDICATION
     Dosage: UNK
     Route: 065
  2. TACROLIMUS HEXAL [Suspect]
     Active Substance: TACROLIMUS
     Indication: IMMUNOSUPPRESSION
     Dosage: 3.5 MG, BID (1?0?1)
     Route: 065
  3. CELLCEPT [Concomitant]
     Active Substance: MYCOPHENOLATE MOFETIL\MYCOPHENOLATE MOFETIL HYDROCHLORIDE
     Indication: PRODUCT USED FOR UNKNOWN INDICATION
     Dosage: UNK, BID (1?0?1)
     Route: 065
  4. MARCUMAR [Concomitant]
     Active Substance: PHENPROCOUMON
     Indication: ATRIAL FIBRILLATION
     Dosage: UNK
     Route: 065
  5. BISOPROLOL [Suspect]
     Active Substance: BISOPROLOL
     Indication: PRODUCT USED FOR UNKNOWN INDICATION
     Dosage: UNK, BID (1?0?1)
     Route: 065
  6. ATORVASTATIN [Suspect]
     Active Substance: ATORVASTATIN
     Indication: PRODUCT USED FOR UNKNOWN INDICATION
     Dosage: UNK, QD (0?0?1)
     Route: 065
  7. RAMIPRIL. [Suspect]
     Active Substance: RAMIPRIL
     Indication: PRODUCT USED FOR UNKNOWN INDICATION
     Dosage: UNK, QD (1?0?0)
     Route: 065
  8. PANTOZOL [Concomitant]
     Active Substance: PANTOPRAZOLE SODIUM
     Indication: PRODUCT USED FOR UNKNOWN INDICATION
     Dosage: UNK, QD (0?0?1)
     Route: 065

REACTIONS (42)
  - Intervertebral disc protrusion [Unknown]
  - Procalcitonin abnormal [Unknown]
  - Femoral neck fracture [Recovering/Resolving]
  - Red blood cell count decreased [Unknown]
  - Hypertensive nephropathy [Unknown]
  - Tachyarrhythmia [Unknown]
  - Joint effusion [Unknown]
  - Haemoglobin decreased [Unknown]
  - Mean cell volume abnormal [Unknown]
  - Mean cell haemoglobin concentration [Unknown]
  - Blood thyroid stimulating hormone increased [Unknown]
  - Infection [Unknown]
  - Hypertension [Unknown]
  - White blood cell count increased [Unknown]
  - Basophil count decreased [Unknown]
  - Aspartate aminotransferase decreased [Unknown]
  - Brain natriuretic peptide increased [Unknown]
  - Seroma [Unknown]
  - Spinal stenosis [Unknown]
  - Atrial fibrillation [Unknown]
  - Haemorrhage [Unknown]
  - Depressed mood [Unknown]
  - Lymphocyte count decreased [Unknown]
  - Blood calcium decreased [Unknown]
  - Fall [Recovering/Resolving]
  - Cardiac septal hypertrophy [Unknown]
  - Acidosis hyperchloraemic [Unknown]
  - Alanine aminotransferase decreased [Unknown]
  - Prothrombin time prolonged [Unknown]
  - Contusion [Unknown]
  - Lung adenocarcinoma [Unknown]
  - Blood loss anaemia [Unknown]
  - Colon cancer [Unknown]
  - Toxicity to various agents [Unknown]
  - Haematocrit decreased [Unknown]
  - Blood creatinine increased [Unknown]
  - Neutrophil count increased [Unknown]
  - Gamma-glutamyltransferase increased [Unknown]
  - Pain [Unknown]
  - Renal tubular acidosis [Unknown]
  - Chronic kidney disease [Unknown]
  - Pyrexia [Unknown]

NARRATIVE: CASE EVENT DATE: 2010
